FAERS Safety Report 6287892-9 (Version None)
Quarter: 2009Q3

REPORT INFORMATION
  Report Type: 
  Country: None (occurrence: None)
  Receive Date: 20090729
  Receipt Date: 20090720
  Transmission Date: 20100115
  Serious: Yes (Disabling)
  Sender: FDA-Public Use
  Company Number: US-JNJFOC-20080600250

PATIENT
  Sex: Female

DRUGS (2)
  1. LEVAQUIN [Suspect]
  2. LEVAQUIN [Suspect]
     Indication: URINARY TRACT INFECTION

REACTIONS (5)
  - ALOPECIA [None]
  - NEUROPATHY PERIPHERAL [None]
  - PLANTAR FASCIITIS [None]
  - RHEUMATOID ARTHRITIS [None]
  - TENDONITIS [None]
